FAERS Safety Report 8217523-X (Version None)
Quarter: 2012Q1

REPORT INFORMATION
  Report Type: 
  Country: None (occurrence: None)
  Receive Date: 20120315
  Receipt Date: 20120305
  Transmission Date: 20120608
  Serious: Yes (Hospitalization, Other)
  Sender: FDA-Public Use
  Company Number: 2012P1009155

PATIENT
  Age: 75 Year
  Sex: Female

DRUGS (5)
  1. VITAMIN B6 [Concomitant]
  2. PYRIDOXINE HCL [Concomitant]
  3. ^ROUTINE MEDICATIONS AND ANTI-COAGULATION FOR ATRIAL FIBRILLIATION^ [Concomitant]
  4. ISONIAZID [Suspect]
     Indication: LATENT TUBERCULOSIS
     Dosage: 300 MG; QD;
  5. SUPPLEMENTS [Concomitant]

REACTIONS (18)
  - DYSPNOEA [None]
  - COUGH [None]
  - ARTHRALGIA [None]
  - HEART RATE INCREASED [None]
  - ANTINUCLEAR ANTIBODY POSITIVE [None]
  - CHILLS [None]
  - CHEST PAIN [None]
  - LUNG CONSOLIDATION [None]
  - LUPUS-LIKE SYNDROME [None]
  - OEDEMA PERIPHERAL [None]
  - NIGHT SWEATS [None]
  - PLEURITIC PAIN [None]
  - PNEUMONITIS [None]
  - HEART RATE IRREGULAR [None]
  - PLEURAL EFFUSION [None]
  - WHITE BLOOD CELL COUNT INCREASED [None]
  - ATRIAL FIBRILLATION [None]
  - GENERALISED OEDEMA [None]
